FAERS Safety Report 8025717-1 (Version None)
Quarter: 2012Q1

REPORT INFORMATION
  Report Type: 
  Country: None (occurrence: None)
  Receive Date: 20120105
  Receipt Date: 20110513
  Transmission Date: 20120608
  Serious: No
  Sender: FDA-Public Use
  Company Number: US-ABBOTT-10P-163-0685943-00

PATIENT
  Sex: Female
  Weight: 72.64 kg

DRUGS (9)
  1. SYNTHROID [Suspect]
     Indication: HYPOTHYROIDISM
     Dates: start: 19980101
  2. GABAPENTIN [Concomitant]
     Indication: RHEUMATOID ARTHRITIS
  3. CALCIUM ACETATE [Concomitant]
     Indication: MINERAL SUPPLEMENTATION
  4. LITHIUM [Concomitant]
     Indication: BIPOLAR DISORDER
  5. METHOTREXATE [Concomitant]
     Indication: RHEUMATOID ARTHRITIS
     Dates: start: 20100101
  6. PLAQUENIL [Concomitant]
     Indication: PRODUCT USED FOR UNKNOWN INDICATION
  7. UNKNOWN PAIN MEDICATIONS [Concomitant]
     Indication: RHEUMATOID ARTHRITIS
  8. SULFASALAZINE [Concomitant]
     Indication: PRODUCT USED FOR UNKNOWN INDICATION
  9. ESTROGENIC SUBSTANCE [Concomitant]
     Indication: HORMONE REPLACEMENT THERAPY

REACTIONS (3)
  - CONSTIPATION [None]
  - HYPERHIDROSIS [None]
  - INCONTINENCE [None]
